FAERS Safety Report 6084989-3 (Version None)
Quarter: 2009Q1

REPORT INFORMATION
  Report Type: 
  Country: None (occurrence: None)
  Receive Date: 20090220
  Receipt Date: 20090212
  Transmission Date: 20090719
  Serious: Yes (Hospitalization)
  Sender: FDA-Public Use
  Company Number: US-JNJFOC-20090203688

PATIENT
  Sex: Female
  Weight: 90.72 kg

DRUGS (12)
  1. DURAGESIC-100 [Suspect]
     Route: 062
  2. DURAGESIC-100 [Suspect]
     Indication: NEURALGIA
     Route: 062
  3. FENTANYL TRANSDERMAL SYSTEM [Suspect]
     Indication: NEURALGIA
     Route: 062
  4. HYDROCODONE BITARTRATE [Concomitant]
     Indication: PAIN
     Dosage: 5/500 TABLET 8 IN 24 HOURS
     Route: 048
  5. XANAX [Concomitant]
     Indication: ANXIETY
     Route: 048
  6. PAXIL [Concomitant]
     Indication: DEPRESSION
     Route: 048
  7. WELLBUTRIN SR [Concomitant]
     Dosage: 1 IN PM
     Route: 048
  8. WELLBUTRIN SR [Concomitant]
     Indication: DEPRESSION
     Dosage: 1 IN AM
     Route: 048
  9. LOVASTATIN [Concomitant]
     Indication: BLOOD CHOLESTEROL INCREASED
     Route: 048
  10. SYNTHROID [Concomitant]
     Indication: THYROID DISORDER
     Route: 048
  11. LEVODOPA [Concomitant]
     Indication: PARKINSON'S DISEASE
     Dosage: 25/100 IN 24 HOURS
     Route: 048
  12. MIRAPEX [Concomitant]
     Indication: PARKINSON'S DISEASE
     Dosage: 0.75 MG  UNKNOWN IN 24 HOURS
     Route: 048

REACTIONS (9)
  - APPLICATION SITE ERYTHEMA [None]
  - ASTHENIA [None]
  - DYSKINESIA [None]
  - HOSPITALISATION [None]
  - HYPERTENSION [None]
  - INSOMNIA [None]
  - LETHARGY [None]
  - PRODUCT QUALITY ISSUE [None]
  - WRONG TECHNIQUE IN DRUG USAGE PROCESS [None]
